FAERS Safety Report 5500733-X (Version None)
Quarter: 2007Q4

REPORT INFORMATION
  Report Type: 
  Country: None (occurrence: None)
  Receive Date: 20071029
  Receipt Date: 20071023
  Transmission Date: 20080405
  Serious: Yes (Death, Other)
  Sender: FDA-Public Use
  Company Number: US-ASTRAZENECA-2006UW09482

PATIENT
  Age: 79 Year
  Sex: Female
  Weight: 55.3 kg

DRUGS (5)
  1. CRESTOR [Suspect]
     Route: 048
     Dates: start: 20040501, end: 20050601
  2. FOSINOPRIL SODIUM [Concomitant]
  3. HYDROCHLOROTHIAZIDE [Concomitant]
  4. LIBRIUM [Concomitant]
  5. CELEBREX [Concomitant]

REACTIONS (2)
  - AMYOTROPHIC LATERAL SCLEROSIS [None]
  - DEATH [None]
